FAERS Safety Report 7417064-3 (Version None)
Quarter: 2011Q2

REPORT INFORMATION
  Report Type: 
  Country: None (occurrence: None)
  Receive Date: 20110415
  Receipt Date: 20110325
  Transmission Date: 20111010
  Serious: Yes (Death)
  Sender: FDA-Public Use
  Company Number: US-BAYER-200922707NA

PATIENT
  Age: 77 Year
  Sex: Male
  Weight: 63.039 kg

DRUGS (15)
  1. ZESTRIL [Concomitant]
     Dosage: 5 MG, BID
     Route: 048
  2. METOPROLOL TARTRATE [Concomitant]
     Dosage: 25 MG, QD
  3. MUCOMYST [Concomitant]
     Dosage: 600
     Route: 048
  4. METOPROLOL TARTRATE [Concomitant]
     Dosage: 12.5 MG, BID
     Route: 048
  5. LANSOPRAZOLE [Concomitant]
     Dosage: 30 MG, QD
     Route: 048
  6. TIROFIBAN [Concomitant]
     Dosage: 12.500 MG, UNK
     Route: 042
     Dates: start: 20020913
  7. TRASYLOL [Suspect]
     Indication: PRODUCT USED FOR UNKNOWN INDICATION
     Dosage: UNK
     Dates: start: 20020916
  8. MORPHINE SULFATE [Concomitant]
     Dosage: 1-2MG, PRN
     Route: 042
     Dates: start: 20020913
  9. LISINOPRIL [Concomitant]
     Dosage: 5, DAILY
     Route: 048
  10. AGGRASTAT [Concomitant]
     Dosage: 0.9MCG/KG/MINUTE
     Route: 042
     Dates: start: 20020914
  11. ACETYLSALICYLIC ACID SRT [Concomitant]
     Dosage: 325, DAILY
     Route: 048
  12. SIMVASTATIN [Concomitant]
     Dosage: 20 MG, UNK
     Route: 048
  13. AGGRASTAT [Concomitant]
     Dosage: 0.1MCG/KG/MIN
     Route: 042
     Dates: start: 20020914
  14. TRASYLOL [Suspect]
     Dosage: 1 ML, INITIAL DOSE
     Route: 042
  15. AMIODARONE [Concomitant]
     Dosage: 200 MG, QD
     Route: 048

REACTIONS (2)
  - INJURY [None]
  - DEATH [None]
